FAERS Safety Report 4382303-2 (Version None)
Quarter: 2004Q2

REPORT INFORMATION
  Report Type: 
  Country: None (occurrence: None)
  Receive Date: 20040621
  Receipt Date: 20040621
  Transmission Date: 20050107
  Serious: Yes (Hospitalization)
  Sender: FDA-Public Use
  Company Number: None

PATIENT
  Sex: Male
  Weight: 73.9363 kg

DRUGS (5)
  1. GLEEVEC [Suspect]
     Indication: PROSTATE CANCER
     Dosage: 400 MG BID
     Dates: start: 20040422
  2. LISINOPRIL [Concomitant]
  3. CIPRO [Concomitant]
  4. IBUPROFEN [Concomitant]
  5. COMPAZINE [Concomitant]

REACTIONS (2)
  - HYDRONEPHROSIS [None]
  - NEPHROLITHIASIS [None]
